FAERS Safety Report 6845232-8 (Version None)
Quarter: 2010Q3

REPORT INFORMATION
  Report Type: 
  Country: None (occurrence: None)
  Receive Date: 20100715
  Receipt Date: 20071002
  Transmission Date: 20110219
  Serious: No
  Sender: FDA-Public Use
  Company Number: US-PFIZER INC-2007068541

PATIENT
  Sex: Female
  Weight: 65.8 kg

DRUGS (17)
  1. CHANTIX [Suspect]
     Indication: SMOKING CESSATION THERAPY
     Route: 048
     Dates: start: 20070810
  2. ALL OTHER THERAPEUTIC PRODUCTS [Concomitant]
  3. LOTREL [Concomitant]
  4. LASIX [Concomitant]
  5. PROMETHAZINE HCL [Concomitant]
     Indication: MOTION SICKNESS
     Route: 030
  6. PROMETHAZINE HCL [Concomitant]
     Indication: NAUSEA
  7. PROMETHAZINE HCL [Concomitant]
     Indication: HEADACHE
  8. PROMETHAZINE HCL [Concomitant]
     Indication: MIGRAINE
  9. PREMARIN [Concomitant]
  10. EFFEXOR [Concomitant]
  11. RESTORIL [Concomitant]
  12. NEURONTIN [Concomitant]
  13. XANAX [Concomitant]
  14. EVISTA [Concomitant]
  15. PRILOSEC [Concomitant]
  16. PREVACID [Concomitant]
  17. AMLODIPINE BESYLATE AND BENAZEPRIL HCL [Concomitant]
     Indication: BLOOD PRESSURE

REACTIONS (11)
  - ABDOMINAL DISCOMFORT [None]
  - ACTIVITIES OF DAILY LIVING IMPAIRED [None]
  - BLOOD PRESSURE INCREASED [None]
  - CHEST PAIN [None]
  - DEPRESSION [None]
  - GASTROOESOPHAGEAL REFLUX DISEASE [None]
  - HEADACHE [None]
  - INSOMNIA [None]
  - MALAISE [None]
  - NAUSEA [None]
  - WEIGHT INCREASED [None]
